FAERS Safety Report 4302634-1 (Version None)
Quarter: 2004Q1

REPORT INFORMATION
  Report Type: 
  Country: None (occurrence: None)
  Receive Date: 20040217
  Receipt Date: 20030620
  Transmission Date: 20041129
  Serious: Yes (Other)
  Sender: FDA-Public Use
  Company Number: 02/00528-USE

PATIENT
  Age: 54 Year
  Sex: Female
  Weight: 73.9 kg

DRUGS (2)
  1. CLIMARA [Suspect]
     Indication: HORMONE REPLACEMENT THERAPY
     Dosage: CONT. TRANSDERMAL
     Route: 062
     Dates: start: 20010701, end: 20020120
  2. AYGESTIN [Concomitant]

REACTIONS (5)
  - CHEST PAIN [None]
  - DEEP VEIN THROMBOSIS [None]
  - FATIGUE [None]
  - HEADACHE [None]
  - PNEUMONIA [None]
